FAERS Safety Report 4825613-4 (Version None)
Quarter: 2005Q4

REPORT INFORMATION
  Report Type: 
  Country: None (occurrence: None)
  Receive Date: 20051111
  Receipt Date: 20051018
  Transmission Date: 20060501
  Serious: No
  Sender: FDA-Public Use
  Company Number: US-GLAXOSMITHKLINE-A0578682A

PATIENT
  Sex: Male

DRUGS (8)
  1. AVODART [Suspect]
     Indication: DRUG USE FOR UNKNOWN INDICATION
     Route: 048
  2. UROXATRAL [Concomitant]
  3. LIPITOR [Concomitant]
  4. ASPIRIN [Concomitant]
     Dosage: 8MG PER DAY
  5. ASPIRIN [Concomitant]
     Dosage: 81MG PER DAY
  6. FISH OIL [Concomitant]
     Dosage: 5CAP PER DAY
     Route: 048
  7. MULTI-VITAMIN [Concomitant]
  8. BUFFERIN [Concomitant]

REACTIONS (2)
  - RASH [None]
  - URTICARIA [None]
